FAERS Safety Report 10591985 (Version 3)
Quarter: 2020Q4

REPORT INFORMATION
  Report Type: Spontaneous
  Country: CA (occurrence: CA)
  Receive Date: 20141119
  Receipt Date: 20201125
  Transmission Date: 20210113
  Serious: Yes (Death)
  Sender: FDA-Public Use
  Company Number: CA-009507513-1411CAN006349

PATIENT
  Age: 50 Year
  Sex: Female

DRUGS (2)
  1. AVASTIN [Suspect]
     Active Substance: BEVACIZUMAB
     Indication: GLIOBLASTOMA
     Dosage: 800 MG, EVERY 2 WEEKS
     Route: 042
     Dates: start: 20140822, end: 20141031
  2. TEMODAL [Suspect]
     Active Substance: TEMOZOLOMIDE
     Indication: GLIOBLASTOMA
     Dosage: FREQUENCY: 5 DAYS MONTHLY
     Route: 048

REACTIONS (2)
  - Death [Fatal]
  - Headache [Fatal]

NARRATIVE: CASE EVENT DATE: 20141107
